FAERS Safety Report 7203066-9 (Version None)
Quarter: 2010Q4

REPORT INFORMATION
  Report Type: 
  Country: None (occurrence: None)
  Receive Date: 20101229
  Receipt Date: 20101221
  Transmission Date: 20110411
  Serious: Yes (Hospitalization, Other)
  Sender: FDA-Public Use
  Company Number: US-ABBOTT-10P-163-0683668-00

PATIENT
  Sex: Female
  Weight: 76.272 kg

DRUGS (7)
  1. HUMIRA [Suspect]
     Indication: RHEUMATOID ARTHRITIS
     Dates: start: 20000101, end: 20100907
  2. HUMIRA [Suspect]
     Dates: start: 20101104
  3. VICODIN [Concomitant]
     Indication: PAIN
     Dates: start: 20100801
  4. TRIAMTERENE [Concomitant]
     Indication: HYPERTENSION
  5. IRON [Concomitant]
     Indication: ANAEMIA
  6. VITAMIN D [Concomitant]
     Indication: VITAMIN SUPPLEMENTATION
  7. ASPIRIN [Concomitant]
     Indication: CARDIOVASCULAR EVENT PROPHYLAXIS

REACTIONS (12)
  - BACK PAIN [None]
  - BLOOD POTASSIUM DECREASED [None]
  - BLOOD SODIUM DECREASED [None]
  - CONTRAST MEDIA REACTION [None]
  - DYSPNOEA [None]
  - GAIT DISTURBANCE [None]
  - INSOMNIA [None]
  - PAIN [None]
  - RED BLOOD CELLS CSF POSITIVE [None]
  - THROMBOSIS [None]
  - TREMOR [None]
  - VOMITING [None]
